FAERS Safety Report 4985717-2 (Version None)
Quarter: 2006Q2

REPORT INFORMATION
  Report Type: 
  Country: None (occurrence: None)
  Receive Date: 20060421
  Receipt Date: 20060405
  Transmission Date: 20061013
  Serious: Yes (Other)
  Sender: FDA-Public Use
  Company Number: GBR-2006-0002204

PATIENT
  Age: 35 Year
  Sex: Female

DRUGS (9)
  1. DIHYDROCODEINE BITARTRATE INJ [Suspect]
     Indication: DRUG USE FOR UNKNOWN INDICATION
  2. MORPHINE SULFATE [Suspect]
     Indication: DRUG USE FOR UNKNOWN INDICATION
  3. HUMIRA [Suspect]
     Indication: DRUG USE FOR UNKNOWN INDICATION
     Dosage: 40 MG
     Dates: start: 20040429, end: 20050524
  4. FERROUS SULFATE TAB [Suspect]
     Indication: DRUG USE FOR UNKNOWN INDICATION
  5. FLUOXETINE [Suspect]
     Indication: DRUG USE FOR UNKNOWN INDICATION
  6. FOLIC ACID [Suspect]
     Indication: DRUG USE FOR UNKNOWN INDICATION
  7. ALENDRONATE SODIUM [Suspect]
     Indication: DRUG USE FOR UNKNOWN INDICATION
  8. AZATHIOPRINE [Concomitant]
  9. PREDNISOLONE [Concomitant]

REACTIONS (1)
  - OSTEOMYELITIS [None]
